FAERS Safety Report 6425129-8 (Version None)
Quarter: 2009Q4

REPORT INFORMATION
  Report Type: 
  Country: None (occurrence: None)
  Receive Date: 20091103
  Receipt Date: 20090804
  Transmission Date: 20100525
  Serious: Yes (Other)
  Sender: FDA-Public Use
  Company Number: GB-PFIZER INC-2009250572

PATIENT
  Sex: Female

DRUGS (1)
  1. CARDURA [Suspect]
     Dosage: UNK

REACTIONS (1)
  - FAECES DISCOLOURED [None]
